FAERS Safety Report 15093043 (Version 1)
Quarter: 2018Q3

REPORT INFORMATION
  Report Type: Spontaneous
  Country: IE (occurrence: IE)
  Receive Date: 20180629
  Receipt Date: 20180629
  Transmission Date: 20181010
  Serious: Yes (Life-Threatening, Hospitalization, Other)
  Sender: FDA-Public Use
  Company Number: IE-TEVA-2018-IE-916543

PATIENT
  Age: 44 Year
  Sex: Female
  Weight: 67 kg

DRUGS (10)
  1. QUETIAPINE (G) [Suspect]
     Active Substance: QUETIAPINE
     Indication: SCHIZOPHRENIA
     Dosage: 400 MILLIGRAM DAILY; 400MG DAILY
     Route: 048
  2. PARACETAMOL [Suspect]
     Active Substance: ACETAMINOPHEN
     Indication: PAIN
     Route: 048
  3. VENLAFAXINE (GENERIC) [Suspect]
     Active Substance: VENLAFAXINE HYDROCHLORIDE
     Indication: SCHIZOPHRENIA
     Dosage: 300 MILLIGRAM DAILY; 300MG DAILY
     Route: 048
  4. DOXYCYCLINE (GENERIC) [Concomitant]
  5. LITHIUM (GENERIC) [Suspect]
     Active Substance: LITHIUM
     Indication: SCHIZOPHRENIA
     Dosage: 1000 MILLIGRAM DAILY; 1000MG DAILY
     Route: 065
  6. LEVOTHYROXINE (G) [Concomitant]
  7. AMISULPRIDE (G) [Concomitant]
  8. CARBIMAZOLE (GENERIC) [Concomitant]
  9. CENTYL K 2.5MG/573 MG MODIFIED?RELEASE TABLETS. [Concomitant]
     Dosage: 1
  10. FLUPENTHIXOL (GENERIC) [Concomitant]

REACTIONS (2)
  - Hepatic failure [Not Recovered/Not Resolved]
  - Intentional overdose [Not Recovered/Not Resolved]

NARRATIVE: CASE EVENT DATE: 20180405
